FAERS Safety Report 10328184 (Version 1)
Quarter: 2014Q3

REPORT INFORMATION
  Report Type: Spontaneous
  Country: US (occurrence: US)
  Receive Date: 20140721
  Receipt Date: 20140721
  Transmission Date: 20150326
  Serious: Yes (Other)
  Sender: FDA-Public Use
  Company Number: PHEH2014US014322

PATIENT
  Age: 15 Year

DRUGS (2)
  1. KEPPRA [Suspect]
     Active Substance: LEVETIRACETAM
     Dosage: 500 MG, UNK
  2. TEGRETOL [Suspect]
     Active Substance: CARBAMAZEPINE
     Dosage: 250 MG, UNK

REACTIONS (5)
  - Convulsion [Unknown]
  - Deja vu [Unknown]
  - Fear [Unknown]
  - Hangover [Unknown]
  - Feeling abnormal [Unknown]
